FAERS Safety Report 16697210 (Version 1)
Quarter: 2019Q3

REPORT INFORMATION
  Report Type: Spontaneous
  Country: US (occurrence: US)
  Receive Date: 20190813
  Receipt Date: 20190813
  Transmission Date: 20191004
  Serious: No
  Sender: FDA-Public Use
  Company Number: US-PFIZER INC-2019345316

PATIENT
  Age: 68 Year
  Sex: Female
  Weight: 120 kg

DRUGS (3)
  1. NIASPAN ER [Suspect]
     Active Substance: NIACIN
     Dosage: UNK
  2. PROCARDIA [Suspect]
     Active Substance: NIFEDIPINE
     Dosage: UNK
  3. METOPROLOL SUCCINATE. [Suspect]
     Active Substance: METOPROLOL SUCCINATE
     Dosage: UNK

REACTIONS (1)
  - Drug hypersensitivity [Unknown]
